FAERS Safety Report 6544872-3 (Version None)
Quarter: 2010Q1

REPORT INFORMATION
  Report Type: 
  Country: None (occurrence: None)
  Receive Date: 20100121
  Receipt Date: 20100112
  Transmission Date: 20100710
  Serious: Yes (Hospitalization)
  Sender: FDA-Public Use
  Company Number: JP-ELI_LILLY_AND_COMPANY-JP200910005305

PATIENT
  Age: 17 Year
  Sex: Female

DRUGS (5)
  1. ZYPREXA [Suspect]
     Dosage: 2.5 MG, DAILY (1/D)
     Route: 048
     Dates: start: 20090525, end: 20090531
  2. ZYPREXA [Suspect]
     Dosage: 5 MG, DAILY (1/D)
     Route: 048
     Dates: start: 20090601, end: 20091015
  3. TEGRETOL [Concomitant]
     Route: 048
  4. HIRNAMIN [Concomitant]
     Route: 048
  5. TETRAMIDE [Concomitant]
     Route: 048

REACTIONS (2)
  - OFF LABEL USE [None]
  - WHITE BLOOD CELL COUNT DECREASED [None]
